FAERS Safety Report 9782125 (Version 2)
Quarter: 2014Q1

REPORT INFORMATION
  Report Type: Spontaneous
  Country: TW (occurrence: TW)
  Receive Date: 20131226
  Receipt Date: 20140106
  Transmission Date: 20141002
  Serious: Yes (Death, Hospitalization)
  Sender: FDA-Public Use
  Company Number: TW-BAXTER-2013BAX051493

PATIENT
  Sex: Female

DRUGS (3)
  1. DIANEAL PD-2, PERITONEAL DIALYSIS SOLUTION WITH 1.5% DEXTROSE ^BAXTER^ [Suspect]
     Indication: PERITONEAL DIALYSIS
     Route: 033
  2. BAXTER EXTRANEAL PERITONEAL DIALYSIS SOLUTION WITH 7.5% ICODEXTRIN [Suspect]
     Indication: PERITONEAL DIALYSIS
     Route: 033
  3. NUTRINEAL PD4 WITH 1.1% AMINO ACID SOLUTION [Suspect]
     Indication: PERITONEAL DIALYSIS
     Route: 033

REACTIONS (5)
  - Sepsis [Fatal]
  - Lip and/or oral cavity cancer [Fatal]
  - Malnutrition [Unknown]
  - Hypoalbuminaemia [Unknown]
  - Mental disorder [Unknown]
